FAERS Safety Report 9717077 (Version 3)
Quarter: 2015Q3

REPORT INFORMATION
  Report Type: Spontaneous
  Country: US (occurrence: US)
  Receive Date: 20131127
  Receipt Date: 20150803
  Transmission Date: 20151125
  Serious: No
  Sender: FDA-Public Use
  Company Number: US-GILEAD-2009-0020200

PATIENT
  Age: 53 Year
  Sex: Male
  Weight: 66.22 kg

DRUGS (10)
  1. WARFARIN [Concomitant]
     Active Substance: WARFARIN
  2. METOLAZONE. [Concomitant]
     Active Substance: METOLAZONE
  3. ADVAIR HFA [Concomitant]
     Active Substance: FLUTICASONE PROPIONATE\SALMETEROL XINAFOATE
  4. REVATIO [Concomitant]
     Active Substance: SILDENAFIL CITRATE
  5. LOVENOX [Concomitant]
     Active Substance: ENOXAPARIN SODIUM
  6. LETAIRIS [Suspect]
     Active Substance: AMBRISENTAN
     Indication: PULMONARY ARTERIAL HYPERTENSION
     Route: 048
     Dates: start: 20080714
  7. LASIX [Concomitant]
     Active Substance: FUROSEMIDE
  8. POTASSIUM CHLORIDE. [Concomitant]
     Active Substance: POTASSIUM CHLORIDE
  9. COMBIVENT [Concomitant]
     Active Substance: ALBUTEROL SULFATE\IPRATROPIUM BROMIDE
  10. ALDACTONE [Concomitant]
     Active Substance: SPIRONOLACTONE

REACTIONS (3)
  - Nasal congestion [Unknown]
  - Peripheral swelling [Unknown]
  - Hypotension [Unknown]
